FAERS Safety Report 9701849 (Version 1)
Quarter: 2013Q4

REPORT INFORMATION
  Report Type: Report from Study
  Country: AR (occurrence: AR)
  Receive Date: 20131121
  Receipt Date: 20131121
  Transmission Date: 20140711
  Serious: Yes (Hospitalization)
  Sender: FDA-Public Use
  Company Number: PHHY2013AR133491

PATIENT
  Sex: Male

DRUGS (2)
  1. GALVUS MET [Suspect]
     Dosage: 850/50 MG, UNK
     Route: 048
  2. EXFORGE [Suspect]
     Dosage: 80/5 MG, UNK
     Route: 048

REACTIONS (1)
  - Myocardial infarction [Recovering/Resolving]
